FAERS Safety Report 8515088-6 (Version None)
Quarter: 2012Q3

REPORT INFORMATION
  Report Type: 
  Country: None (occurrence: None)
  Receive Date: 20120717
  Receipt Date: 20120710
  Transmission Date: 20120928
  Serious: Yes (Life-Threatening)
  Sender: FDA-Public Use
  Company Number: GB-JNJFOC-20120613264

PATIENT
  Age: 29 Year
  Sex: Male
  Weight: 54 kg

DRUGS (7)
  1. OLANZAPINE [Concomitant]
     Indication: PSYCHOTIC DISORDER
     Route: 048
     Dates: start: 20120513
  2. ZOPICLONE [Concomitant]
     Indication: INSOMNIA
     Route: 048
     Dates: start: 20120513
  3. ACETAMINOPHEN [Concomitant]
     Indication: ABDOMINAL PAIN
     Route: 048
     Dates: start: 20120513
  4. LORAZEPAM [Concomitant]
     Indication: AGITATION
     Route: 048
     Dates: start: 20120513
  5. CLOPIXOL [Interacting]
     Indication: PSYCHOTIC DISORDER
     Dosage: STAT DOSE. TEST DOSE PRIOR TO MAINTENANCE DOPOT
     Route: 030
     Dates: start: 20120531, end: 20120531
  6. CODEINE [Concomitant]
     Indication: PAIN
     Route: 048
     Dates: start: 20120521, end: 20120524
  7. TRAMADOL HCL [Suspect]
     Indication: ABDOMINAL PAIN
     Dosage: 50 MG- 100 MG, 4 TIMES A DAY
     Route: 048
     Dates: start: 20120524

REACTIONS (5)
  - SYNCOPE [None]
  - DYSKINESIA [None]
  - CONVULSION [None]
  - MUSCLE RIGIDITY [None]
  - DRUG INTERACTION [None]
